FAERS Safety Report 9303852 (Version 1)
Quarter: 2013Q2

REPORT INFORMATION
  Report Type: Spontaneous
  Country: US (occurrence: US)
  Receive Date: 20130522
  Receipt Date: 20130522
  Transmission Date: 20140414
  Serious: Yes (Hospitalization)
  Sender: FDA-Public Use
  Company Number: US-BAYER-2013-063351

PATIENT
  Age: 39 Year
  Sex: Female

DRUGS (9)
  1. YAZ [Suspect]
  2. YASMIN [Suspect]
  3. OCELLA [Suspect]
  4. IBUPROFEN [Concomitant]
     Dosage: UNK UNK, PRN
  5. NORCO [Concomitant]
     Dosage: UNK UNK, PRN
  6. CHONDROITIN [Concomitant]
  7. GLUCOSAMINE [Concomitant]
  8. ZOFRAN [Concomitant]
  9. PEPCID [Concomitant]

REACTIONS (2)
  - Pulmonary embolism [None]
  - Deep vein thrombosis [None]
